FAERS Safety Report 5948259-3 (Version None)
Quarter: 2008Q4

REPORT INFORMATION
  Report Type: 
  Country: None (occurrence: None)
  Receive Date: 20081111
  Receipt Date: 20081103
  Transmission Date: 20090506
  Serious: Yes (Hospitalization)
  Sender: FDA-Public Use
  Company Number: GB-TEVA-180001ISR

PATIENT
  Age: 61 Year
  Sex: Male

DRUGS (4)
  1. PREDNISOLONE [Suspect]
  2. CYCLOSPORINE [Suspect]
  3. MYCOPHENOLATE MOFETIL [Suspect]
  4. DACLIXIMAB [Suspect]

REACTIONS (7)
  - COMPLICATIONS OF TRANSPLANT SURGERY [None]
  - CYTOMEGALOVIRUS COLITIS [None]
  - HEPATIC FUNCTION ABNORMAL [None]
  - METABOLIC ACIDOSIS [None]
  - RENAL CYST [None]
  - RENAL FAILURE ACUTE [None]
  - THROMBOCYTOPENIA [None]
